FAERS Safety Report 8668753 (Version 2)
Quarter: 2013Q2

REPORT INFORMATION
  Report Type: Spontaneous
  Country: US (occurrence: US)
  Receive Date: 20120717
  Receipt Date: 20130405
  Transmission Date: 20140414
  Serious: Yes (Other)
  Sender: FDA-Public Use
  Company Number: US-ELI_LILLY_AND_COMPANY-US201207002658

PATIENT
  Sex: Female

DRUGS (4)
  1. HUMATROPE [Suspect]
     Indication: HYPOPITUITARISM
     Dosage: 0.3 MG, QD
     Dates: start: 201109
  2. DESMOPRESSIN [Concomitant]
     Dosage: UNK, UNKNOWN
  3. LEVOTHYROXINE [Concomitant]
     Dosage: UNK, UNKNOWN
  4. FOLIC ACID [Concomitant]
     Dosage: UNK, UNKNOWN

REACTIONS (1)
  - Neoplasm recurrence [Not Recovered/Not Resolved]
